FAERS Safety Report 5179382-1 (Version None)
Quarter: 2006Q4

REPORT INFORMATION
  Report Type: 
  Country: None (occurrence: None)
  Receive Date: 20061219
  Receipt Date: 20061215
  Transmission Date: 20070319
  Serious: Yes (Hospitalization)
  Sender: FDA-Public Use
  Company Number: FR-GILEAD-2006-0010839

PATIENT
  Sex: Male
  Weight: 78 kg

DRUGS (4)
  1. TRUVADA [Suspect]
     Route: 048
     Dates: start: 20060201, end: 20061101
  2. NORVIR [Concomitant]
     Route: 048
  3. FUZEON [Concomitant]
     Route: 058
     Dates: start: 20060201
  4. TMC114 [Concomitant]
     Route: 048
     Dates: start: 20060501, end: 20061101

REACTIONS (4)
  - ARTHRALGIA [None]
  - NEPHRITIS INTERSTITIAL [None]
  - RENAL FAILURE ACUTE [None]
  - RENAL TUBULAR NECROSIS [None]
